FAERS Safety Report 21204582 (Version 2)
Quarter: 2022Q3

REPORT INFORMATION
  Report Type: Report from Study
  Country: US (occurrence: US)
  Receive Date: 20220812
  Receipt Date: 20220905
  Transmission Date: 20221027
  Serious: Yes (Hospitalization)
  Sender: FDA-Public Use
  Company Number: US-ABBVIE-22K-163-4473867-00

PATIENT
  Sex: Male

DRUGS (1)
  1. IMBRUVICA [Suspect]
     Active Substance: IBRUTINIB
     Indication: Waldenstrom^s macroglobulinaemia
     Route: 048
     Dates: start: 202201, end: 2022

REACTIONS (4)
  - Cholecystitis infective [Unknown]
  - Abdominal pain upper [Unknown]
  - Onycholysis [Unknown]
  - Nail discolouration [Unknown]

NARRATIVE: CASE EVENT DATE: 20220101
